FAERS Safety Report 8298552-7 (Version None)
Quarter: 2012Q2

REPORT INFORMATION
  Report Type: 
  Country: None (occurrence: None)
  Receive Date: 20120419
  Receipt Date: 20120328
  Transmission Date: 20120825
  Serious: No
  Sender: FDA-Public Use
  Company Number: US-ABBOTT-12P-163-0902736-00

PATIENT
  Sex: Female
  Weight: 36.1 kg

DRUGS (1)
  1. LUPRON [Suspect]
     Indication: PRECOCIOUS PUBERTY
     Dates: start: 20111005, end: 20120104

REACTIONS (1)
  - INJECTION SITE ABSCESS STERILE [None]
